FAERS Safety Report 23983830 (Version 1)
Quarter: 2024Q2

REPORT INFORMATION
  Report Type: Spontaneous
  Country: US (occurrence: AF)
  Receive Date: 20240618
  Receipt Date: 20240618
  Transmission Date: 20240716
  Serious: No
  Sender: FDA-Public Use
  Company Number: AF-ABBVIE-5799351

PATIENT
  Age: 73 Year
  Sex: Female

DRUGS (3)
  1. BOTOX COSMETIC [Suspect]
     Active Substance: ONABOTULINUMTOXINA
     Indication: Skin wrinkling
     Dosage: FORM STRENGTH: 24 UNIT
     Route: 030
     Dates: start: 20240514, end: 20240514
  2. NEXIUM [Concomitant]
     Active Substance: ESOMEPRAZOLE MAGNESIUM
     Indication: Gastrooesophageal reflux disease
     Route: 065
  3. LATISSE [Concomitant]
     Active Substance: BIMATOPROST
     Indication: Growth of eyelashes
     Route: 065

REACTIONS (3)
  - Pain [Recovered/Resolved]
  - Injection site pain [Recovered/Resolved]
  - Discomfort [Recovered/Resolved]

NARRATIVE: CASE EVENT DATE: 20240514
